FAERS Safety Report 15186134 (Version 1)
Quarter: 2018Q3

REPORT INFORMATION
  Report Type: Report from Study
  Country: US (occurrence: US)
  Receive Date: 20180723
  Receipt Date: 20180723
  Transmission Date: 20181010
  Serious: No
  Sender: FDA-Public Use
  Company Number: US-EXELIXIS-CABO-18012228

PATIENT
  Age: 79 Year
  Sex: Male

DRUGS (15)
  1. CINNAMON. [Concomitant]
     Active Substance: CINNAMON
  2. ASA [Concomitant]
     Active Substance: ASPIRIN
  3. AMLODIPINE [Concomitant]
     Active Substance: AMLODIPINE BESYLATE
  4. SIMVASTATIN. [Concomitant]
     Active Substance: SIMVASTATIN
  5. MELOXICAM. [Concomitant]
     Active Substance: MELOXICAM
  6. IBU [Concomitant]
     Active Substance: IBUPROFEN
  7. ZYTIGA [Concomitant]
     Active Substance: ABIRATERONE ACETATE
  8. DIGOXIN. [Concomitant]
     Active Substance: DIGOXIN
  9. CABOMETYX [Suspect]
     Active Substance: CABOZANTINIB S-MALATE
     Indication: RENAL CANCER
     Dosage: 60 MG, QD
     Route: 048
     Dates: start: 20171219
  10. SELENIUM [Concomitant]
     Active Substance: SELENIUM
  11. STOOL SOFTENER (DOCUSATE) [Concomitant]
     Active Substance: DOCUSATE
  12. VITAMIN B12 [Concomitant]
     Active Substance: CYANOCOBALAMIN
  13. ZESTORETIC [Concomitant]
     Active Substance: HYDROCHLOROTHIAZIDE\LISINOPRIL
  14. NOVOLOG [Concomitant]
     Active Substance: INSULIN ASPART
  15. PROPRANOLOL [Concomitant]
     Active Substance: PROPRANOLOL HYDROCHLORIDE

REACTIONS (6)
  - Tongue blistering [Not Recovered/Not Resolved]
  - Fatigue [Unknown]
  - Oral mucosal blistering [Unknown]
  - Oral disorder [Not Recovered/Not Resolved]
  - Palmar-plantar erythrodysaesthesia syndrome [Unknown]
  - Weight decreased [Unknown]

NARRATIVE: CASE EVENT DATE: 201801
